FAERS Safety Report 6086489-3 (Version None)
Quarter: 2009Q1

REPORT INFORMATION
  Report Type: 
  Country: None (occurrence: None)
  Receive Date: 20090223
  Receipt Date: 20090218
  Transmission Date: 20090719
  Serious: Yes (Death, Hospitalization)
  Sender: FDA-Public Use
  Company Number: PHHY2009JP05626

PATIENT
  Sex: Male
  Weight: 51 kg

DRUGS (4)
  1. DIOVAN [Suspect]
     Indication: HYPERTENSION
     Dosage: 20 MG ONCE DAILY
     Route: 048
     Dates: start: 20090104, end: 20090121
  2. DIOVAN [Suspect]
     Indication: CARDIAC FAILURE
  3. WARFARIN SODIUM [Concomitant]
     Dosage: UNK
     Route: 048
     Dates: start: 20080101
  4. TAKEPRON [Concomitant]
     Dosage: UNK
     Route: 048
     Dates: start: 20080101

REACTIONS (5)
  - ACUTE RESPIRATORY DISTRESS SYNDROME [None]
  - CARDIAC FAILURE CHRONIC [None]
  - DYSPNOEA [None]
  - ENDOTRACHEAL INTUBATION [None]
  - PNEUMONIA [None]
